FAERS Safety Report 9642171 (Version 1)
Quarter: 2013Q4

REPORT INFORMATION
  Report Type: Spontaneous
  Country: TR (occurrence: TR)
  Receive Date: 20131023
  Receipt Date: 20131023
  Transmission Date: 20140711
  Serious: Yes (Other)
  Sender: FDA-Public Use
  Company Number: TR-ROXANE LABORATORIES, INC.-2013-RO-01706RO

PATIENT
  Age: 8 Year
  Sex: Male

DRUGS (1)
  1. IMIPRAMINE PAMOATE [Suspect]
     Indication: ENURESIS
     Dosage: 10 MG

REACTIONS (1)
  - Dystonia [Recovered/Resolved]
